FAERS Safety Report 13266753 (Version 1)
Quarter: 2017Q1

REPORT INFORMATION
  Report Type: Report from Study
  Country: CA (occurrence: CA)
  Receive Date: 20170224
  Receipt Date: 20170224
  Transmission Date: 20170428
  Serious: Yes (Other)
  Sender: FDA-Public Use
  Company Number: CA-BEH-2017078333

PATIENT
  Age: 53 Year
  Sex: Male

DRUGS (14)
  1. MYFORTIC [Concomitant]
     Active Substance: MYCOPHENOLATE SODIUM
  2. NORVASC [Concomitant]
     Active Substance: AMLODIPINE BESYLATE
  3. ADVAGRAF [Concomitant]
     Active Substance: TACROLIMUS
  4. SEPTRA [Concomitant]
     Active Substance: SULFAMETHOXAZOLE\TRIMETHOPRIM
  5. SALBUTAMOL [Concomitant]
     Active Substance: ALBUTEROL
  6. PREDNISONE. [Concomitant]
     Active Substance: PREDNISONE
  7. VITAMIN D                          /00107901/ [Concomitant]
     Active Substance: ERGOCALCIFEROL
  8. BERINERT [Suspect]
     Active Substance: HUMAN C1-ESTERASE INHIBITOR
     Indication: PROPHYLAXIS
  9. LIPITOR [Concomitant]
     Active Substance: ATORVASTATIN CALCIUM
  10. BERINERT [Suspect]
     Active Substance: HUMAN C1-ESTERASE INHIBITOR
     Indication: HEREDITARY ANGIOEDEMA
     Dosage: 1500 IU, UNK
     Route: 042
     Dates: start: 2015
  11. DANAZOL. [Concomitant]
     Active Substance: DANAZOL
  12. NEXIUM [Concomitant]
     Active Substance: ESOMEPRAZOLE MAGNESIUM
  13. SYMBICORT [Concomitant]
     Active Substance: BUDESONIDE\FORMOTEROL FUMARATE DIHYDRATE
  14. RHINOCORT AQUA [Concomitant]
     Active Substance: BUDESONIDE

REACTIONS (3)
  - Arterial aneurysm repair [Unknown]
  - Vascular graft [Unknown]
  - Aneurysm [Unknown]

NARRATIVE: CASE EVENT DATE: 20161223
